FAERS Safety Report 4276895-1 (Version None)
Quarter: 2004Q1

REPORT INFORMATION
  Report Type: 
  Country: None (occurrence: None)
  Receive Date: 20040120
  Receipt Date: 20031209
  Transmission Date: 20041129
  Serious: Yes (Life-Threatening)
  Sender: FDA-Public Use
  Company Number: 2003S1000403

PATIENT
  Age: 62 Year
  Sex: Male

DRUGS (1)
  1. DOXORUBICIN HCL [Suspect]
     Indication: HEPATIC NEOPLASM MALIGNANT
     Dosage: 250 MG/M^2; WEEKLY; INTRAVENOUS
     Route: 042
     Dates: start: 20031124, end: 20031124

REACTIONS (5)
  - FEBRILE NEUTROPENIA [None]
  - MEDICATION ERROR [None]
  - OEDEMA PERIPHERAL [None]
  - STOMATITIS [None]
  - THROMBOCYTOPENIA [None]
